FAERS Safety Report 4993398-7 (Version None)
Quarter: 2006Q2

REPORT INFORMATION
  Report Type: 
  Country: None (occurrence: None)
  Receive Date: 20060505
  Receipt Date: 20060426
  Transmission Date: 20061013
  Serious: Yes (Other)
  Sender: FDA-Public Use
  Company Number: FR-JNJFOC-20060406278

PATIENT
  Age: 65 Year
  Sex: Female

DRUGS (2)
  1. CAELYX [Suspect]
     Indication: OVARIAN CANCER
     Route: 042
  2. CARBOPLATIN [Concomitant]
     Dosage: AUC5

REACTIONS (2)
  - HYPERTENSIVE CRISIS [None]
  - INFUSION RELATED REACTION [None]
